FAERS Safety Report 9803686 (Version 1)
Quarter: 2014Q1

REPORT INFORMATION
  Report Type: Spontaneous
  Country: US (occurrence: US)
  Receive Date: 20140108
  Receipt Date: 20140108
  Transmission Date: 20141002
  Serious: No
  Sender: FDA-Public Use
  Company Number: US-GLAXOSMITHKLINE-A1023849A

PATIENT
  Age: 50 Year
  Sex: Male
  Weight: 95.5 kg

DRUGS (2)
  1. LOVAZA [Suspect]
     Indication: LIPIDS ABNORMAL
     Dosage: 2CAP TWICE PER DAY
     Route: 048
     Dates: start: 20130419, end: 20130520
  2. VYTORIN [Concomitant]

REACTIONS (3)
  - Nausea [Recovered/Resolved]
  - Abdominal pain upper [Recovered/Resolved]
  - Constipation [Recovered/Resolved]
